FAERS Safety Report 8488119-X (Version None)
Quarter: 2012Q3

REPORT INFORMATION
  Report Type: 
  Country: None (occurrence: None)
  Receive Date: 20120705
  Receipt Date: 20120625
  Transmission Date: 20120928
  Serious: Yes (Hospitalization)
  Sender: FDA-Public Use
  Company Number: US-BAYER-2012-063653

PATIENT
  Age: 44 Year
  Sex: Female
  Weight: 95.4 kg

DRUGS (16)
  1. YAZ [Suspect]
  2. DROSPIRENONE AND ETHINYL ESTRADIOL [Suspect]
  3. CYMBALTA [Concomitant]
     Dosage: 30 MG, DAILY
     Route: 048
  4. PROMETHAZINE [Concomitant]
     Dosage: 25 MG, UNK
     Route: 048
  5. VICODIN [Concomitant]
     Indication: MUSCLE SPASMS
  6. NUVIGIL [Concomitant]
     Dosage: 150 MG, UNK
     Route: 048
     Dates: start: 20110115
  7. CYCLOBENZAPRINE [Concomitant]
     Dosage: 10 MG, UNK
     Route: 048
     Dates: start: 20110122, end: 20110218
  8. DIPHENHYDRAMINE HCL [Concomitant]
  9. YASMIN [Suspect]
  10. AZITHROMYCIN [Concomitant]
     Dosage: 250 MG, UNK
     Route: 048
  11. TOPAMAX [Concomitant]
     Dosage: 100 MG, DAILY BEFORE BREAKFAST
     Route: 048
  12. NEURONTIN [Concomitant]
     Dosage: 300 MG, UNK
     Dates: start: 20110330
  13. XYREM [Concomitant]
     Dosage: UNK
     Dates: start: 20110330
  14. PEPCID [Concomitant]
  15. XANAX [Concomitant]
     Dosage: 0.25 MG, TID
     Route: 048
  16. HYDROCODONE BITARTRATE + ACETAMINOPHEN [Concomitant]
     Route: 048

REACTIONS (2)
  - DEEP VEIN THROMBOSIS [None]
  - THROMBOPHLEBITIS SUPERFICIAL [None]
